FAERS Safety Report 5425078-8 (Version None)
Quarter: 2007Q3

REPORT INFORMATION
  Report Type: 
  Country: None (occurrence: None)
  Receive Date: 20070824
  Receipt Date: 20070817
  Transmission Date: 20080115
  Serious: Yes (Hospitalization)
  Sender: FDA-Public Use
  Company Number: IT-BRISTOL-MYERS SQUIBB COMPANY-13887203

PATIENT
  Sex: Male

DRUGS (1)
  1. METFORMIN HCL [Suspect]

REACTIONS (1)
  - ACUTE PULMONARY OEDEMA [None]
